FAERS Safety Report 23714553 (Version 2)
Quarter: 2024Q3

REPORT INFORMATION
  Report Type: Spontaneous
  Country: US (occurrence: US)
  Receive Date: 20240406
  Receipt Date: 20240821
  Transmission Date: 20241017
  Serious: No
  Sender: SANOFI AVENTIS
  Company Number: US-SA-SAC20240403000499

PATIENT
  Sex: Female
  Weight: 54.4 kg

DRUGS (4)
  1. KEVZARA [Suspect]
     Active Substance: SARILUMAB
     Indication: Rheumatoid arthritis
     Dosage: 200 MG, QOW
     Route: 058
  2. LACTULOSE [Concomitant]
     Active Substance: LACTULOSE
     Dosage: UNK
  3. LINZESS [Concomitant]
     Active Substance: LINACLOTIDE
     Dosage: UNK
  4. ZOLMITRIPTAN [Concomitant]
     Active Substance: ZOLMITRIPTAN
     Dosage: UNK

REACTIONS (2)
  - Pain [Unknown]
  - Hypokinesia [Unknown]
